FAERS Safety Report 10202061 (Version 1)
Quarter: 2014Q2

REPORT INFORMATION
  Report Type: Spontaneous
  Country: US (occurrence: US)
  Receive Date: 20140528
  Receipt Date: 20140528
  Transmission Date: 20141212
  Serious: No
  Sender: FDA-Public Use
  Company Number: US-BRISTOL-MYERS SQUIBB COMPANY-19872100

PATIENT
  Age: 72 Year
  Sex: Female

DRUGS (20)
  1. METFORMIN HCL [Suspect]
     Indication: DIABETES MELLITUS
  2. BROMOCRIPTINE MESYLATE [Concomitant]
     Dosage: TABS
     Dates: start: 20130801
  3. LYRICA [Concomitant]
     Indication: TRANSIENT ISCHAEMIC ATTACK
     Dosage: CAPS
     Dates: start: 20130827
  4. LYRICA [Concomitant]
     Indication: DIABETIC NEUROPATHY
     Dosage: CAPS
     Dates: start: 20130827
  5. GLIPIZIDE [Concomitant]
     Indication: DIABETIC NEUROPATHY
     Dates: start: 20130809
  6. RANITIDINE HCL [Concomitant]
     Indication: OESOPHAGITIS
     Dates: start: 20130809
  7. RANITIDINE HCL [Concomitant]
     Indication: GASTROOESOPHAGEAL REFLUX DISEASE
     Dates: start: 20130809
  8. PRAVASTATIN SODIUM [Concomitant]
     Indication: HYPERLIPIDAEMIA
     Dates: start: 20130809
  9. AMLODIPINE BESYLATE [Concomitant]
     Indication: ESSENTIAL HYPERTENSION
     Dates: start: 20130916
  10. SERTRALINE HCL [Concomitant]
     Indication: DEPRESSION
     Dates: start: 20130918
  11. ENALAPRIL MALEATE [Concomitant]
     Dosage: TABS
     Dates: start: 20130925
  12. NAPROSYN [Concomitant]
     Dates: start: 20131015
  13. VICODIN [Concomitant]
     Dosage: 1DF: 10MG- 325 MG (TABLET 1 ORAL OVARY 8 HAURE AS NEEDED)
     Route: 048
     Dates: start: 20130918
  14. ELMIRON [Concomitant]
     Route: 048
  15. ELMIRON [Concomitant]
     Dosage: CAPSULE
     Route: 048
  16. VITAMIN E [Concomitant]
     Route: 048
  17. ASPIRIN [Concomitant]
     Route: 048
  18. CALCIUM [Concomitant]
     Route: 048
  19. FISH OIL [Concomitant]
  20. GARLIC [Concomitant]
     Route: 048

REACTIONS (1)
  - Drug hypersensitivity [Unknown]
